FAERS Safety Report 11247478 (Version 2)
Quarter: 2015Q2

REPORT INFORMATION
  Report Type: Report from Study
  Country: US (occurrence: None)
  Receive Date: 20150617
  Receipt Date: 20150617
  Transmission Date: 20150821
  Serious: No
  Sender: FDA-Public Use
  Company Number: 2014TASUS000452

PATIENT
  Age: 61 Year
  Sex: Female
  Weight: 101.6 kg

DRUGS (29)
  1. ALPHAGAN P (BRIMONIDINE TARTRATE) [Concomitant]
  2. ENDOCET (OXYCODONE HYDROCHLORIDE, PARACETAMOL) [Concomitant]
  3. AZOPT (BRINZOLAMIDE) [Concomitant]
  4. PRAVACHOL (PRAVASTATIN SODIUM) [Concomitant]
  5. SUCRALFATE. [Concomitant]
     Active Substance: SUCRALFATE
  6. NEXIUM [Concomitant]
     Active Substance: ESOMEPRAZOLE MAGNESIUM
  7. PRILOSEC (OMEPRAZOLE) [Concomitant]
     Active Substance: OMEPRAZOLE MAGNESIUM
  8. FOLIC ACID. [Concomitant]
     Active Substance: FOLIC ACID
  9. VASOTEC (ENALAPRIL MALEATE) [Concomitant]
  10. XALATAN [Concomitant]
     Active Substance: LATANOPROST
  11. CYMBALTA [Concomitant]
     Active Substance: DULOXETINE HYDROCHLORIDE
  12. CENESTIN (ESTROGENS CONJUGATED) [Concomitant]
  13. LANTUS [Concomitant]
     Active Substance: INSULIN GLARGINE
  14. TOPROL XL [Concomitant]
     Active Substance: METOPROLOL SUCCINATE
  15. SINGULAIR (MONTELUKAST SODIUM) [Concomitant]
  16. ACETAZOLAMIDE. [Concomitant]
     Active Substance: ACETAZOLAMIDE
  17. ATROPINE SULFATE. [Concomitant]
     Active Substance: ATROPINE SULFATE
  18. PREDNISOLONE ACETATE. [Concomitant]
     Active Substance: PREDNISOLONE ACETATE
  19. TRITUSS (DEXTROMETHORPHAN, GUAIFENESIN, PHENYLEPHRINE HYDROCHLORIDE) [Concomitant]
  20. PREDNISONE (PREDNISONE ACETATE) [Concomitant]
  21. HETLIOZ [Suspect]
     Active Substance: TASIMELTEON
     Indication: CIRCADIAN RHYTHM SLEEP DISORDER
     Dates: start: 20140610
  22. NEPTAZANE (METHAZOLAMIDE) [Concomitant]
  23. DILTIAZEM (DILTIAZEM HYDROCHLORIDE) [Concomitant]
  24. COZAAR (LOSARTAN POTASSIUM) [Concomitant]
  25. OXYCONTIN [Concomitant]
     Active Substance: OXYCODONE HYDROCHLORIDE
  26. STROVITE (ASCORBIC ACID, CYANOCOBALAMIN, FOLIC ACID, NICOTINIC ACID, PANTOTHENIC ACID, PYRIDOXINE, RIBOFLAVIN, THIAMINE) [Concomitant]
  27. ZYRTEC [Concomitant]
     Active Substance: CETIRIZINE HYDROCHLORIDE
  28. CLOTRIMAZOLE. [Concomitant]
     Active Substance: CLOTRIMAZOLE
  29. NOVOLOG [Concomitant]
     Active Substance: INSULIN ASPART

REACTIONS (1)
  - Headache [None]

NARRATIVE: CASE EVENT DATE: 20140719
